FAERS Safety Report 7240096-5 (Version None)
Quarter: 2011Q1

REPORT INFORMATION
  Report Type: 
  Country: None (occurrence: None)
  Receive Date: 20110112
  Receipt Date: 20110104
  Transmission Date: 20110831
  Serious: Yes (Other)
  Sender: FDA-Public Use
  Company Number: 2011MA000060

PATIENT
  Sex: Female

DRUGS (1)
  1. METOCLOPRAMIDE [Suspect]
     Dosage: 10 MG;PO
     Route: 048
     Dates: start: 20030101, end: 20070101

REACTIONS (11)
  - DYSTONIA [None]
  - HYPERKINESIA [None]
  - INCORRECT DRUG ADMINISTRATION DURATION [None]
  - TARDIVE DYSKINESIA [None]
  - AKATHISIA [None]
  - ECONOMIC PROBLEM [None]
  - DYSKINESIA [None]
  - MOVEMENT DISORDER [None]
  - EMOTIONAL DISORDER [None]
  - UNEVALUABLE EVENT [None]
  - CHOREA [None]
